FAERS Safety Report 4895325-X (Version None)
Quarter: 2006Q1

REPORT INFORMATION
  Report Type: 
  Country: None (occurrence: None)
  Receive Date: 20060124
  Receipt Date: 20060112
  Transmission Date: 20060701
  Serious: Yes (Other)
  Sender: FDA-Public Use
  Company Number: 2006BH000728

PATIENT
  Age: 45 Year
  Sex: Female

DRUGS (3)
  1. LACTATED RINGER'S [Suspect]
     Dosage: 500 ML; IV
     Route: 042
  2. HYOSCINE HBR HYT [Concomitant]
  3. DYPIRONE [Concomitant]

REACTIONS (3)
  - INFUSION RELATED REACTION [None]
  - PRURITUS GENERALISED [None]
  - RASH [None]
